FAERS Safety Report 9164584 (Version 1)
Quarter: 2013Q1

REPORT INFORMATION
  Report Type: Spontaneous
  Country: US (occurrence: None)
  Receive Date: 20130225
  Receipt Date: 20130225
  Transmission Date: 20140127
  Serious: Yes (Hospitalization)
  Sender: FDA-Public Use
  Company Number: 2013SUN00156

PATIENT
  Age: 70 Year
  Sex: Female

DRUGS (4)
  1. PHENTERMINE HYDROCHLORIDE [Suspect]
     Indication: PRODUCT USED FOR UNKNOWN INDICATION
  2. OMEPRAZOLE (OMEPRAZOLE) [Concomitant]
  3. METFORMIN (METFORMIN) [Concomitant]
  4. CALCIUM PLUS VITAMIN D (CALCIUM PLUS VITAMIN D) [Concomitant]

REACTIONS (6)
  - Ventricular fibrillation [None]
  - Arteriospasm coronary [None]
  - Loss of consciousness [None]
  - Sinus bradycardia [None]
  - Cardiac arrest [None]
  - Mitral valve incompetence [None]
